FAERS Safety Report 7306753-7 (Version None)
Quarter: 2011Q1

REPORT INFORMATION
  Report Type: 
  Country: None (occurrence: None)
  Receive Date: 20110222
  Receipt Date: 20110214
  Transmission Date: 20110831
  Serious: Yes (Hospitalization, Other)
  Sender: FDA-Public Use
  Company Number: ZA-ELI_LILLY_AND_COMPANY-ZA201102003947

PATIENT
  Age: 88 Year
  Sex: Female

DRUGS (3)
  1. XANOR [Concomitant]
     Indication: PANIC DISORDER
  2. FORTEO [Suspect]
     Indication: OSTEOPOROSIS
     Dosage: UNK UNK, EACH MORNING
     Route: 058
     Dates: start: 20100801
  3. IBRUPROFEN [Concomitant]
     Indication: PAIN

REACTIONS (2)
  - MIGRAINE [None]
  - CONVULSION [None]
